FAERS Safety Report 8390859-8 (Version None)
Quarter: 2012Q2

REPORT INFORMATION
  Report Type: 
  Country: None (occurrence: None)
  Receive Date: 20120529
  Receipt Date: 20120523
  Transmission Date: 20120825
  Serious: Yes (Other)
  Sender: FDA-Public Use
  Company Number: US-JNJFOC-20060906216

PATIENT
  Sex: Female

DRUGS (4)
  1. RISPERDAL [Suspect]
     Indication: INSOMNIA
     Route: 065
  2. RISPERDAL [Suspect]
     Indication: NIGHTMARE
     Route: 065
  3. RISPERDAL [Suspect]
     Indication: DEPRESSION
     Route: 065
  4. UNKNOWN MEDICATION [Suspect]
     Indication: ILL-DEFINED DISORDER
     Route: 065

REACTIONS (3)
  - OFF LABEL USE [None]
  - TYPE 2 DIABETES MELLITUS [None]
  - FEELING ABNORMAL [None]
